FAERS Safety Report 8851236 (Version 1)
Quarter: 2012Q4

REPORT INFORMATION
  Report Type: 
  Country: BR (occurrence: BR)
  Receive Date: 20121019
  Receipt Date: 20121019
  Transmission Date: 20130627
  Serious: Yes (Death)
  Sender: FDA-Public Use
  Company Number: BR-PFIZER INC-2012131048

PATIENT
  Age: 48 Year
  Sex: Male

DRUGS (5)
  1. SUTENT [Suspect]
     Indication: RENAL CELL CARCINOMA
     Dosage: 50 mg, cyclic, 1x/day, 4 wks on, 2wks off
     Route: 048
     Dates: start: 20120524
  2. MORPHINE [Concomitant]
     Dosage: 10 mg, every 4 hours
  3. RIVOTRIL [Concomitant]
     Dosage: 5 mg, 1x/day
  4. PARACETAMOL [Concomitant]
     Dosage: every 6 hours
  5. GABAPENTIN [Concomitant]
     Dosage: every 8 hours

REACTIONS (3)
  - Death [Fatal]
  - Oral mucosal blistering [Unknown]
  - Erythema [Unknown]
